FAERS Safety Report 17735513 (Version 1)
Quarter: 2020Q2

REPORT INFORMATION
  Report Type: Spontaneous
  Country: ES (occurrence: ES)
  Receive Date: 20200501
  Receipt Date: 20200501
  Transmission Date: 20200714
  Serious: Yes (Other)
  Sender: FDA-Public Use
  Company Number: ES-MYLANLABS-2020M1042672

PATIENT
  Age: 38 Year
  Sex: Male
  Weight: 99 kg

DRUGS (1)
  1. TELMISARTAN MYLAN 40 MG, COMPRIM? [Suspect]
     Active Substance: TELMISARTAN
     Indication: HYPERTENSION
     Dosage: 40 MG UNA VEZ AL DIA
     Route: 048
     Dates: start: 20200101

REACTIONS (1)
  - Erectile dysfunction [Not Recovered/Not Resolved]

NARRATIVE: CASE EVENT DATE: 20200115
